FAERS Safety Report 9426312 (Version 2)
Quarter: 2013Q3

REPORT INFORMATION
  Report Type: Spontaneous
  Country: US (occurrence: US)
  Receive Date: 20130730
  Receipt Date: 20130912
  Transmission Date: 20140515
  Serious: Yes (Other)
  Sender: FDA-Public Use
  Company Number: US-BRISTOL-MYERS SQUIBB COMPANY-19139286

PATIENT
  Age: 62 Year
  Sex: Female
  Weight: 102 kg

DRUGS (15)
  1. SPRYCEL (CML) TABS 100 MG [Suspect]
     Indication: CHRONIC MYELOID LEUKAEMIA
     Dosage: STRENGTH:100 MG
     Route: 048
     Dates: start: 2013
  2. PAXIL [Concomitant]
  3. ATENOLOL [Concomitant]
     Dosage: TABLETS
     Route: 048
  4. LISINOPRIL + HCTZ [Concomitant]
     Dosage: TABLETS?1 DF : 10-12.5MG
     Route: 048
  5. OMEPRAZOLE [Concomitant]
  6. METFORMIN [Concomitant]
     Dosage: TABLETS
     Route: 048
  7. ZOFRAN [Concomitant]
  8. FLAXSEED OIL [Concomitant]
  9. ASPIRIN [Concomitant]
     Dosage: TABLETS?ENTERIC COATED
     Route: 048
  10. KETOROLAC [Concomitant]
     Dosage: 0.5%?DROPS QID
  11. PRED FORTE [Concomitant]
     Dosage: SUSPENSION ?DROPS
  12. ONDANSETRON HCL [Concomitant]
     Indication: NAUSEA
     Dosage: TABLET
     Route: 048
  13. PAROXETINE HCL [Concomitant]
     Dosage: TABLET
     Route: 048
  14. PREDNISOLONE [Concomitant]
     Dosage: GTT
  15. GATIFLOXACIN [Concomitant]
     Dosage: DROPS?OPTHALAMIC

REACTIONS (3)
  - Cataract [Unknown]
  - Nausea [Unknown]
  - Upper respiratory tract infection [Unknown]
